FAERS Safety Report 25200540 (Version 9)
Quarter: 2025Q3

REPORT INFORMATION
  Report Type: Spontaneous
  Country: GB (occurrence: GB)
  Receive Date: 20250415
  Receipt Date: 20250804
  Transmission Date: 20251020
  Serious: Yes (Other)
  Sender: MYLAN
  Company Number: GB-BRISTOL-MYERS SQUIBB COMPANY-2025-046996

PATIENT
  Age: 79 Year
  Sex: Male

DRUGS (132)
  1. DEXAMETHASONE [Suspect]
     Active Substance: DEXAMETHASONE
     Indication: Plasma cell myeloma
     Route: 065
  2. DEXAMETHASONE [Suspect]
     Active Substance: DEXAMETHASONE
  3. DEXAMETHASONE [Suspect]
     Active Substance: DEXAMETHASONE
  4. DEXAMETHASONE [Suspect]
     Active Substance: DEXAMETHASONE
     Route: 065
  5. DEXAMETHASONE [Suspect]
     Active Substance: DEXAMETHASONE
     Route: 065
  6. DEXAMETHASONE [Suspect]
     Active Substance: DEXAMETHASONE
  7. DEXAMETHASONE [Suspect]
     Active Substance: DEXAMETHASONE
  8. DEXAMETHASONE [Suspect]
     Active Substance: DEXAMETHASONE
     Route: 065
  9. DEXAMETHASONE [Suspect]
     Active Substance: DEXAMETHASONE
     Route: 065
  10. DEXAMETHASONE [Suspect]
     Active Substance: DEXAMETHASONE
     Route: 065
  11. DEXAMETHASONE [Suspect]
     Active Substance: DEXAMETHASONE
  12. DEXAMETHASONE [Suspect]
     Active Substance: DEXAMETHASONE
  13. BORTEZOMIB [Suspect]
     Active Substance: BORTEZOMIB
     Indication: Plasma cell myeloma
  14. BORTEZOMIB [Suspect]
     Active Substance: BORTEZOMIB
     Route: 065
  15. BORTEZOMIB [Suspect]
     Active Substance: BORTEZOMIB
     Route: 065
  16. BORTEZOMIB [Suspect]
     Active Substance: BORTEZOMIB
  17. BORTEZOMIB [Suspect]
     Active Substance: BORTEZOMIB
     Indication: Plasma cell myeloma
  18. BORTEZOMIB [Suspect]
     Active Substance: BORTEZOMIB
     Route: 065
  19. BORTEZOMIB [Suspect]
     Active Substance: BORTEZOMIB
     Route: 065
  20. BORTEZOMIB [Suspect]
     Active Substance: BORTEZOMIB
  21. VELCADE [Suspect]
     Active Substance: BORTEZOMIB
     Indication: Plasma cell myeloma
  22. VELCADE [Suspect]
     Active Substance: BORTEZOMIB
     Route: 065
  23. VELCADE [Suspect]
     Active Substance: BORTEZOMIB
     Route: 065
  24. VELCADE [Suspect]
     Active Substance: BORTEZOMIB
  25. THALIDOMIDE [Suspect]
     Active Substance: THALIDOMIDE
     Indication: Plasma cell myeloma
  26. THALIDOMIDE [Suspect]
     Active Substance: THALIDOMIDE
     Route: 065
  27. THALIDOMIDE [Suspect]
     Active Substance: THALIDOMIDE
     Route: 065
  28. THALIDOMIDE [Suspect]
     Active Substance: THALIDOMIDE
  29. THALIDOMIDE [Suspect]
     Active Substance: THALIDOMIDE
  30. THALIDOMIDE [Suspect]
     Active Substance: THALIDOMIDE
     Route: 065
  31. THALIDOMIDE [Suspect]
     Active Substance: THALIDOMIDE
  32. THALIDOMIDE [Suspect]
     Active Substance: THALIDOMIDE
     Route: 065
  33. THALIDOMIDE [Suspect]
     Active Substance: THALIDOMIDE
     Route: 065
  34. THALIDOMIDE [Suspect]
     Active Substance: THALIDOMIDE
     Route: 065
  35. THALIDOMIDE [Suspect]
     Active Substance: THALIDOMIDE
  36. THALIDOMIDE [Suspect]
     Active Substance: THALIDOMIDE
  37. CYCLOPHOSPHAMIDE [Suspect]
     Active Substance: CYCLOPHOSPHAMIDE
     Indication: Plasma cell myeloma
  38. CYCLOPHOSPHAMIDE [Suspect]
     Active Substance: CYCLOPHOSPHAMIDE
     Route: 065
  39. CYCLOPHOSPHAMIDE [Suspect]
     Active Substance: CYCLOPHOSPHAMIDE
     Route: 065
  40. CYCLOPHOSPHAMIDE [Suspect]
     Active Substance: CYCLOPHOSPHAMIDE
  41. POMALIDOMIDE [Suspect]
     Active Substance: POMALIDOMIDE
     Indication: Plasma cell myeloma
  42. POMALIDOMIDE [Suspect]
     Active Substance: POMALIDOMIDE
     Indication: Plasma cell myeloma
     Route: 065
  43. POMALIDOMIDE [Suspect]
     Active Substance: POMALIDOMIDE
     Route: 065
  44. POMALIDOMIDE [Suspect]
     Active Substance: POMALIDOMIDE
  45. LENALIDOMIDE [Suspect]
     Active Substance: LENALIDOMIDE
     Indication: Plasma cell myeloma
     Dates: start: 2015, end: 202012
  46. LENALIDOMIDE [Suspect]
     Active Substance: LENALIDOMIDE
     Indication: Plasma cell myeloma
     Route: 065
     Dates: start: 2015, end: 202012
  47. LENALIDOMIDE [Suspect]
     Active Substance: LENALIDOMIDE
     Route: 065
     Dates: start: 2015, end: 202012
  48. LENALIDOMIDE [Suspect]
     Active Substance: LENALIDOMIDE
     Dates: start: 2015, end: 202012
  49. ISATUXIMAB [Suspect]
     Active Substance: ISATUXIMAB
     Indication: Plasma cell myeloma
  50. ISATUXIMAB [Suspect]
     Active Substance: ISATUXIMAB
     Indication: Plasma cell myeloma
     Route: 065
  51. ISATUXIMAB [Suspect]
     Active Substance: ISATUXIMAB
     Route: 065
  52. ISATUXIMAB [Suspect]
     Active Substance: ISATUXIMAB
  53. TECVAYLI [Suspect]
     Active Substance: TECLISTAMAB-CQYV
     Indication: Plasma cell myeloma
  54. TECVAYLI [Suspect]
     Active Substance: TECLISTAMAB-CQYV
  55. TECVAYLI [Suspect]
     Active Substance: TECLISTAMAB-CQYV
     Route: 065
  56. TECVAYLI [Suspect]
     Active Substance: TECLISTAMAB-CQYV
     Route: 065
  57. TECVAYLI [Suspect]
     Active Substance: TECLISTAMAB-CQYV
  58. TECVAYLI [Suspect]
     Active Substance: TECLISTAMAB-CQYV
  59. TECVAYLI [Suspect]
     Active Substance: TECLISTAMAB-CQYV
     Route: 065
  60. TECVAYLI [Suspect]
     Active Substance: TECLISTAMAB-CQYV
     Route: 065
  61. EPOETIN BETA [Concomitant]
     Active Substance: ERYTHROPOIETIN
     Indication: Product used for unknown indication
     Dosage: 30000 IU, WEEKLY, 30,000 UNITS WEEKLY
     Route: 065
  62. EPOETIN BETA [Concomitant]
     Active Substance: ERYTHROPOIETIN
     Dosage: 30000 IU, WEEKLY, 30,000 UNITS WEEKLY
  63. EPOETIN BETA [Concomitant]
     Active Substance: ERYTHROPOIETIN
     Dosage: 30000 IU, WEEKLY, 30,000 UNITS WEEKLY
  64. EPOETIN BETA [Concomitant]
     Active Substance: ERYTHROPOIETIN
     Dosage: 30000 IU, WEEKLY, 30,000 UNITS WEEKLY
     Route: 065
  65. EPOETIN BETA [Concomitant]
     Active Substance: ERYTHROPOIETIN
     Dosage: 30,000 UNITS WEEKLY
     Route: 065
  66. EPOETIN BETA [Concomitant]
     Active Substance: ERYTHROPOIETIN
     Dosage: 30,000 UNITS WEEKLY
  67. EPOETIN BETA [Concomitant]
     Active Substance: ERYTHROPOIETIN
     Dosage: 30,000 UNITS WEEKLY
  68. EPOETIN BETA [Concomitant]
     Active Substance: ERYTHROPOIETIN
     Dosage: 30,000 UNITS WEEKLY
     Route: 065
  69. ACYCLOVIR [Concomitant]
     Active Substance: ACYCLOVIR
     Indication: Product used for unknown indication
     Dosage: 400 MILLIGRAM, ONCE A DAY (0.5 DAY)
  70. ACYCLOVIR [Concomitant]
     Active Substance: ACYCLOVIR
     Dosage: 400 MILLIGRAM, ONCE A DAY (0.5 DAY)
  71. ACYCLOVIR [Concomitant]
     Active Substance: ACYCLOVIR
     Dosage: 400 MILLIGRAM, ONCE A DAY (0.5 DAY)
     Route: 065
  72. ACYCLOVIR [Concomitant]
     Active Substance: ACYCLOVIR
     Dosage: 400 MILLIGRAM, ONCE A DAY (0.5 DAY)
     Route: 065
  73. ACYCLOVIR [Concomitant]
     Active Substance: ACYCLOVIR
     Dosage: 400 MILLIGRAM, QD
  74. ACYCLOVIR [Concomitant]
     Active Substance: ACYCLOVIR
     Dosage: 400 MILLIGRAM, QD
  75. ACYCLOVIR [Concomitant]
     Active Substance: ACYCLOVIR
     Dosage: 400 MILLIGRAM, QD
     Route: 065
  76. ACYCLOVIR [Concomitant]
     Active Substance: ACYCLOVIR
     Dosage: 400 MILLIGRAM, QD
     Route: 065
  77. ACYCLOVIR [Concomitant]
     Active Substance: ACYCLOVIR
     Dosage: 800 MILLIGRAM, ONCE A DAY (400 MILLIGRAM, BID)
  78. ACYCLOVIR [Concomitant]
     Active Substance: ACYCLOVIR
     Dosage: 800 MILLIGRAM, ONCE A DAY (400 MILLIGRAM, BID)
     Route: 065
  79. ACYCLOVIR [Concomitant]
     Active Substance: ACYCLOVIR
     Dosage: 800 MILLIGRAM, ONCE A DAY (400 MILLIGRAM, BID)
  80. ACYCLOVIR [Concomitant]
     Active Substance: ACYCLOVIR
     Dosage: 800 MILLIGRAM, ONCE A DAY (400 MILLIGRAM, BID)
     Route: 065
  81. APIXABAN [Concomitant]
     Active Substance: APIXABAN
     Indication: Product used for unknown indication
     Dosage: 5 MILLIGRAM, ONCE A DAY (0.5 DAY)
     Route: 065
  82. APIXABAN [Concomitant]
     Active Substance: APIXABAN
     Dosage: 5 MILLIGRAM, ONCE A DAY (0.5 DAY)
  83. APIXABAN [Concomitant]
     Active Substance: APIXABAN
     Dosage: 5 MILLIGRAM, ONCE A DAY (0.5 DAY)
  84. APIXABAN [Concomitant]
     Active Substance: APIXABAN
     Dosage: 5 MILLIGRAM, ONCE A DAY (0.5 DAY)
     Route: 065
  85. APIXABAN [Concomitant]
     Active Substance: APIXABAN
     Dosage: 5 MILLIGRAM, BID (10 MILLIGRAM, QD)
  86. APIXABAN [Concomitant]
     Active Substance: APIXABAN
     Dosage: 5 MILLIGRAM, BID (10 MILLIGRAM, QD)
  87. APIXABAN [Concomitant]
     Active Substance: APIXABAN
     Dosage: 5 MILLIGRAM, BID (10 MILLIGRAM, QD)
     Route: 065
  88. APIXABAN [Concomitant]
     Active Substance: APIXABAN
     Dosage: 5 MILLIGRAM, BID (10 MILLIGRAM, QD)
     Route: 065
  89. APIXABAN [Concomitant]
     Active Substance: APIXABAN
     Dosage: 10 MILLIGRAM, ONCE A DAY (5 MG, Q12H)
     Route: 065
  90. APIXABAN [Concomitant]
     Active Substance: APIXABAN
     Dosage: 10 MILLIGRAM, ONCE A DAY (5 MG, Q12H)
  91. APIXABAN [Concomitant]
     Active Substance: APIXABAN
     Dosage: 10 MILLIGRAM, ONCE A DAY (5 MG, Q12H)
  92. APIXABAN [Concomitant]
     Active Substance: APIXABAN
     Dosage: 10 MILLIGRAM, ONCE A DAY (5 MG, Q12H)
     Route: 065
  93. ATOVAQUONE [Concomitant]
     Active Substance: ATOVAQUONE
     Indication: Product used for unknown indication
     Dosage: 750 MILLIGRAM, ONCE A DAY (0.5 DAY)
  94. ATOVAQUONE [Concomitant]
     Active Substance: ATOVAQUONE
     Dosage: 750 MILLIGRAM, ONCE A DAY (0.5 DAY)
     Route: 065
  95. ATOVAQUONE [Concomitant]
     Active Substance: ATOVAQUONE
     Dosage: 750 MILLIGRAM, ONCE A DAY (0.5 DAY)
     Route: 065
  96. ATOVAQUONE [Concomitant]
     Active Substance: ATOVAQUONE
     Dosage: 750 MILLIGRAM, ONCE A DAY (0.5 DAY)
  97. ATOVAQUONE [Concomitant]
     Active Substance: ATOVAQUONE
     Dosage: 750 MILLIGRAM, BID (1500 MILLIGRAM, QD)
  98. ATOVAQUONE [Concomitant]
     Active Substance: ATOVAQUONE
     Dosage: 750 MILLIGRAM, BID (1500 MILLIGRAM, QD)
     Route: 065
  99. ATOVAQUONE [Concomitant]
     Active Substance: ATOVAQUONE
     Dosage: 750 MILLIGRAM, BID (1500 MILLIGRAM, QD)
  100. ATOVAQUONE [Concomitant]
     Active Substance: ATOVAQUONE
     Dosage: 750 MILLIGRAM, BID (1500 MILLIGRAM, QD)
     Route: 065
  101. ATOVAQUONE [Concomitant]
     Active Substance: ATOVAQUONE
     Dosage: 1500 MILLIGRAM, ONCE A DAY (750 MILLIGRAM, BID)
     Route: 065
  102. ATOVAQUONE [Concomitant]
     Active Substance: ATOVAQUONE
     Dosage: 1500 MILLIGRAM, ONCE A DAY (750 MILLIGRAM, BID)
     Route: 065
  103. ATOVAQUONE [Concomitant]
     Active Substance: ATOVAQUONE
     Dosage: 1500 MILLIGRAM, ONCE A DAY (750 MILLIGRAM, BID)
  104. ATOVAQUONE [Concomitant]
     Active Substance: ATOVAQUONE
     Dosage: 1500 MILLIGRAM, ONCE A DAY (750 MILLIGRAM, BID)
  105. BISOPROLOL [Concomitant]
     Active Substance: BISOPROLOL
     Indication: Product used for unknown indication
     Dosage: 7.5 MILLIGRAM, ONCE A DAY
  106. BISOPROLOL [Concomitant]
     Active Substance: BISOPROLOL
     Dosage: 7.5 MILLIGRAM, ONCE A DAY
     Route: 065
  107. BISOPROLOL [Concomitant]
     Active Substance: BISOPROLOL
     Dosage: 7.5 MILLIGRAM, ONCE A DAY
     Route: 065
  108. BISOPROLOL [Concomitant]
     Active Substance: BISOPROLOL
     Dosage: 7.5 MILLIGRAM, ONCE A DAY
  109. FINASTERIDE [Concomitant]
     Active Substance: FINASTERIDE
     Indication: Product used for unknown indication
     Dosage: 5 MILLIGRAM, ONCE A DAY
  110. FINASTERIDE [Concomitant]
     Active Substance: FINASTERIDE
     Dosage: 5 MILLIGRAM, ONCE A DAY
     Route: 048
  111. FINASTERIDE [Concomitant]
     Active Substance: FINASTERIDE
     Dosage: 5 MILLIGRAM, ONCE A DAY
     Route: 048
  112. FINASTERIDE [Concomitant]
     Active Substance: FINASTERIDE
     Dosage: 5 MILLIGRAM, ONCE A DAY
  113. TAMSULOSIN [Concomitant]
     Active Substance: TAMSULOSIN
     Indication: Product used for unknown indication
  114. TAMSULOSIN [Concomitant]
     Active Substance: TAMSULOSIN
     Route: 065
  115. TAMSULOSIN [Concomitant]
     Active Substance: TAMSULOSIN
     Route: 065
  116. TAMSULOSIN [Concomitant]
     Active Substance: TAMSULOSIN
  117. ZOPICLONE [Concomitant]
     Active Substance: ZOPICLONE
     Indication: Product used for unknown indication
     Dosage: 3.75 MG, QD AT BEDTIME) (3.75 MILLIGRAM, PM (ZOPLICLONE 3.75 MG NOCTE))
  118. ZOPICLONE [Concomitant]
     Active Substance: ZOPICLONE
     Indication: Product used for unknown indication
     Dosage: 3.75 MG, QD AT BEDTIME) (3.75 MILLIGRAM, PM (ZOPLICLONE 3.75 MG NOCTE))
     Route: 065
  119. ZOPICLONE [Concomitant]
     Active Substance: ZOPICLONE
     Dosage: 3.75 MG, QD AT BEDTIME) (3.75 MILLIGRAM, PM (ZOPLICLONE 3.75 MG NOCTE))
     Route: 065
  120. ZOPICLONE [Concomitant]
     Active Substance: ZOPICLONE
     Dosage: 3.75 MG, QD AT BEDTIME) (3.75 MILLIGRAM, PM (ZOPLICLONE 3.75 MG NOCTE))
  121. DOCUSATE [Concomitant]
     Active Substance: DOCUSATE
     Indication: Product used for unknown indication
     Dosage: 200 MILLIGRAM, ONCE A DAY (0.5 DAY)
  122. DOCUSATE [Concomitant]
     Active Substance: DOCUSATE
     Dosage: 200 MILLIGRAM, ONCE A DAY (0.5 DAY)
  123. DOCUSATE [Concomitant]
     Active Substance: DOCUSATE
     Dosage: 200 MILLIGRAM, ONCE A DAY (0.5 DAY)
     Route: 065
  124. DOCUSATE [Concomitant]
     Active Substance: DOCUSATE
     Dosage: 200 MILLIGRAM, ONCE A DAY (0.5 DAY)
     Route: 065
  125. DOCUSATE [Concomitant]
     Active Substance: DOCUSATE
     Dosage: 400 MILLIGRAM, ONCE A DAY (200 MILLIGRAM, BID)
  126. DOCUSATE [Concomitant]
     Active Substance: DOCUSATE
     Dosage: 400 MILLIGRAM, ONCE A DAY (200 MILLIGRAM, BID)
  127. DOCUSATE [Concomitant]
     Active Substance: DOCUSATE
     Dosage: 400 MILLIGRAM, ONCE A DAY (200 MILLIGRAM, BID)
     Route: 065
  128. DOCUSATE [Concomitant]
     Active Substance: DOCUSATE
     Dosage: 400 MILLIGRAM, ONCE A DAY (200 MILLIGRAM, BID)
     Route: 065
  129. BISACODYL [Concomitant]
     Active Substance: BISACODYL
     Indication: Product used for unknown indication
     Dosage: 5 MILLIGRAM, ONCE A DAY (5 MILLIGRAM, PM (BISACODYL 5MG AT NIGHT))
  130. BISACODYL [Concomitant]
     Active Substance: BISACODYL
     Dosage: 5 MILLIGRAM, ONCE A DAY (5 MILLIGRAM, PM (BISACODYL 5MG AT NIGHT))
     Route: 065
  131. BISACODYL [Concomitant]
     Active Substance: BISACODYL
     Dosage: 5 MILLIGRAM, ONCE A DAY (5 MILLIGRAM, PM (BISACODYL 5MG AT NIGHT))
     Route: 065
  132. BISACODYL [Concomitant]
     Active Substance: BISACODYL
     Dosage: 5 MILLIGRAM, ONCE A DAY (5 MILLIGRAM, PM (BISACODYL 5MG AT NIGHT))

REACTIONS (4)
  - IVth nerve paralysis [Unknown]
  - IgA nephropathy [Unknown]
  - Drug ineffective [Unknown]
  - COVID-19 [Unknown]

NARRATIVE: CASE EVENT DATE: 20201201
